FAERS Safety Report 6890548-2 (Version None)
Quarter: 2010Q3

REPORT INFORMATION
  Report Type: 
  Country: None (occurrence: None)
  Receive Date: 20100731
  Receipt Date: 20081128
  Transmission Date: 20110219
  Serious: No
  Sender: FDA-Public Use
  Company Number: US-PFIZER INC-2008100768

PATIENT
  Sex: Male
  Weight: 70.454 kg

DRUGS (2)
  1. LIPITOR [Suspect]
     Indication: BLOOD CHOLESTEROL INCREASED
     Dates: start: 20030101
  2. LEVOXYL [Concomitant]
     Indication: HYPOTHYROIDISM

REACTIONS (3)
  - DIZZINESS [None]
  - MUSCULAR WEAKNESS [None]
  - MYALGIA [None]
